FAERS Safety Report 20406118 (Version 2)
Quarter: 2022Q1

REPORT INFORMATION
  Report Type: Spontaneous
  Country: US (occurrence: US)
  Receive Date: 20220131
  Receipt Date: 20220209
  Transmission Date: 20220423
  Serious: Yes (Death, Hospitalization, Other)
  Sender: FDA-Public Use
  Company Number: US-GLAXOSMITHKLINE-US2022AMR015711

PATIENT
  Age: 77 Year
  Sex: Female
  Weight: 111.7 kg

DRUGS (1)
  1. SOTROVIMAB [Suspect]
     Active Substance: SOTROVIMAB
     Indication: COVID-19
     Dosage: 500 MG, ONCE
     Route: 042
     Dates: start: 20220103, end: 20220103

REACTIONS (5)
  - Cardiac arrest [Fatal]
  - Oxygen saturation decreased [Unknown]
  - Dyspnoea [Unknown]
  - Tachypnoea [Unknown]
  - Wheezing [Unknown]

NARRATIVE: CASE EVENT DATE: 20220103
